FAERS Safety Report 21780976 (Version 2)
Quarter: 2023Q1

REPORT INFORMATION
  Report Type: Report from Study
  Country: EG (occurrence: EG)
  Receive Date: 20221227
  Receipt Date: 20230116
  Transmission Date: 20230417
  Serious: No
  Sender: FDA-Public Use
  Company Number: EG-002147023-NVSC2022EG296613

PATIENT
  Sex: Male

DRUGS (2)
  1. ENTRESTO [Suspect]
     Active Substance: SACUBITRIL\VALSARTAN
     Indication: Cardiac failure
     Dosage: UNK (CONCENTRATION: 50 MG)
     Route: 048
  2. ENTRESTO [Suspect]
     Active Substance: SACUBITRIL\VALSARTAN
     Dosage: UNK (CONCENTRATION :100 MG)
     Route: 048
     Dates: start: 20221120

REACTIONS (5)
  - Dyspnoea [Unknown]
  - Memory impairment [Unknown]
  - Nervousness [Unknown]
  - Fear [Unknown]
  - Cough [Unknown]
